FAERS Safety Report 23722253 (Version 6)
Quarter: 2024Q4

REPORT INFORMATION
  Report Type: Spontaneous
  Country: KR (occurrence: KR)
  Receive Date: 20240409
  Receipt Date: 20241106
  Transmission Date: 20250115
  Serious: Yes (Other)
  Sender: PFIZER
  Company Number: KR-PFIZER INC-PV202400045449

PATIENT
  Age: 10 Year
  Sex: Male

DRUGS (2)
  1. GENOTROPIN [Suspect]
     Active Substance: SOMATROPIN
     Indication: Short stature
     Dosage: 3 IU, 6 TIMES WEEKLY
     Dates: start: 202306
  2. GENOTROPIN [Suspect]
     Active Substance: SOMATROPIN
     Dosage: 3 IU, 6 TIMES WEEKLY

REACTIONS (5)
  - Lower limb fracture [Unknown]
  - Underdose [Unknown]
  - Poor quality device used [Unknown]
  - Product contamination [Unknown]
  - Drug dose omission by device [Unknown]
